FAERS Safety Report 24399259 (Version 1)
Quarter: 2024Q4

REPORT INFORMATION
  Report Type: Spontaneous
  Country: IN (occurrence: IN)
  Receive Date: 20241004
  Receipt Date: 20241004
  Transmission Date: 20250115
  Serious: Yes (Other)
  Sender: ANI
  Company Number: IN-ANIPHARMA-2024-IN-000178

PATIENT
  Age: 4 Month
  Sex: Male

DRUGS (1)
  1. CORTICOTROPIN [Suspect]
     Active Substance: CORTICOTROPIN
     Indication: Infantile spasms
     Dosage: 150 MG/SQUARE-METER
     Route: 030

REACTIONS (1)
  - Dyskinesia [Unknown]
